FAERS Safety Report 25487476 (Version 1)
Quarter: 2025Q2

REPORT INFORMATION
  Report Type: Report from Study
  Country: US (occurrence: US)
  Receive Date: 20250627
  Receipt Date: 20250627
  Transmission Date: 20250716
  Serious: Yes (Other)
  Sender: TAKEDA
  Company Number: US-TAKEDA-2020TUS025081

PATIENT
  Sex: Female
  Weight: 50 kg

DRUGS (3)
  1. VEDOLIZUMAB [Suspect]
     Active Substance: VEDOLIZUMAB
     Indication: Colitis ulcerative
     Dosage: UNK UNK, Q6WEEKS
     Dates: start: 201709
  2. APRISO [Concomitant]
     Active Substance: MESALAMINE
     Indication: Colitis ulcerative
  3. VALACYCLOVIR HYDROCHLORIDE [Concomitant]
     Active Substance: VALACYCLOVIR HYDROCHLORIDE

REACTIONS (5)
  - Colitis ulcerative [Recovering/Resolving]
  - Tendonitis [Not Recovered/Not Resolved]
  - Anxiety [Unknown]
  - Personality change [Unknown]
  - Panic attack [Unknown]
